FAERS Safety Report 16976343 (Version 6)
Quarter: 2024Q3

REPORT INFORMATION
  Report Type: Report from Study
  Country: CA (occurrence: CA)
  Receive Date: 20191030
  Receipt Date: 20240816
  Transmission Date: 20241017
  Serious: Yes (Hospitalization, Other)
  Sender: GLAXOSMITHKLINE
  Company Number: CA-GLAXOSMITHKLINE-CA2019AMR195163

PATIENT

DRUGS (125)
  1. MEPOLIZUMAB [Suspect]
     Active Substance: MEPOLIZUMAB
     Indication: Asthma
     Dosage: 100 MG, MO
     Route: 042
     Dates: start: 20170111
  2. ADVAIR HFA [Suspect]
     Active Substance: FLUTICASONE PROPIONATE\SALMETEROL XINAFOATE
     Indication: Product used for unknown indication
     Dosage: 2 PUFF(S), BID
     Route: 055
     Dates: start: 20150219
  3. VENTOLIN HFA [Suspect]
     Active Substance: ALBUTEROL SULFATE
     Indication: Product used for unknown indication
     Dosage: 2 PUFF(S), PRN, 25 DAYS
     Route: 065
     Dates: start: 20150516
  4. VENTOLIN HFA [Suspect]
     Active Substance: ALBUTEROL SULFATE
     Dosage: 2 PUFF(S), 10 DAYS
     Route: 065
     Dates: start: 20150609
  5. ALBUTEROL SULFATE [Suspect]
     Active Substance: ALBUTEROL SULFATE
     Indication: Product used for unknown indication
     Dosage: 2 PUFF(S), PRN, 50 DAYS
     Route: 055
     Dates: start: 20180114
  6. ALBUTEROL SULFATE [Suspect]
     Active Substance: ALBUTEROL SULFATE
     Dosage: 2 PUFF(S), PRN, 50 DAYS
     Route: 055
     Dates: start: 20180520
  7. ALBUTEROL SULFATE [Suspect]
     Active Substance: ALBUTEROL SULFATE
     Dosage: 2 PUFF(S), PRN, 50 DAYS
     Route: 055
     Dates: start: 20181204
  8. ALBUTEROL SULFATE [Suspect]
     Active Substance: ALBUTEROL SULFATE
     Dosage: 2 PUFF(S), PRN, 50 DAYS
     Route: 055
     Dates: start: 20190223
  9. ALBUTEROL SULFATE [Suspect]
     Active Substance: ALBUTEROL SULFATE
     Dosage: 2 PUFF(S), PRN, 50 DAYS
     Route: 055
     Dates: start: 20190429
  10. INCRUSE ELLIPTA [Suspect]
     Active Substance: UMECLIDINIUM BROMIDE
     Indication: Product used for unknown indication
     Dosage: 1 PUFF(S), QD
     Route: 065
  11. BREO ELLIPTA [Suspect]
     Active Substance: FLUTICASONE FUROATE\VILANTEROL TRIFENATATE
     Indication: Product used for unknown indication
     Dosage: 1 DF, QD, 90 DAYS
     Route: 055
     Dates: start: 20170227
  12. BREO ELLIPTA [Suspect]
     Active Substance: FLUTICASONE FUROATE\VILANTEROL TRIFENATATE
     Dosage: 1 DF, QD, 90 DAYS
     Route: 055
     Dates: start: 20170501
  13. BREO ELLIPTA [Suspect]
     Active Substance: FLUTICASONE FUROATE\VILANTEROL TRIFENATATE
     Dosage: 1 DF, QD, 90 DAYS
     Route: 055
     Dates: start: 20170526
  14. BREO ELLIPTA [Suspect]
     Active Substance: FLUTICASONE FUROATE\VILANTEROL TRIFENATATE
     Dosage: 1 DF, QD, 60 DAYS
     Route: 055
     Dates: start: 20171011
  15. ALBUTEROL SULFATE [Suspect]
     Active Substance: ALBUTEROL SULFATE
     Indication: Product used for unknown indication
     Dosage: 2 PUFF(S), QID, 45 DAYS
     Route: 065
     Dates: start: 20160229
  16. ALBUTEROL SULFATE [Suspect]
     Active Substance: ALBUTEROL SULFATE
     Dosage: 2 PUFF(S), 45 DAYS
     Route: 055
  17. ALBUTEROL SULFATE [Suspect]
     Active Substance: ALBUTEROL SULFATE
     Dosage: 2 PUFF(S), 25 DAYS
  18. UMECLIDINIUM BROMIDE\VILANTEROL TRIFENATATE [Suspect]
     Active Substance: UMECLIDINIUM BROMIDE\VILANTEROL TRIFENATATE
     Indication: Product used for unknown indication
     Dosage: 1 DF
     Route: 065
  19. UMECLIDINIUM BROMIDE [Suspect]
     Active Substance: UMECLIDINIUM BROMIDE
     Indication: Product used for unknown indication
     Dosage: 1 DF
  20. SINGULAIR [Suspect]
     Active Substance: MONTELUKAST SODIUM
     Indication: Product used for unknown indication
     Dosage: 10 MG, QD
     Route: 065
  21. MONTELUKAST SODIUM [Suspect]
     Active Substance: MONTELUKAST SODIUM
     Indication: Product used for unknown indication
     Dosage: 10 MG, QD, 30 DAYS
     Dates: start: 20180223
  22. MONTELUKAST SODIUM [Suspect]
     Active Substance: MONTELUKAST SODIUM
     Dosage: 10 MG, QD, 90 DAYS
     Route: 048
     Dates: start: 20180317
  23. MONTELUKAST SODIUM [Suspect]
     Active Substance: MONTELUKAST SODIUM
     Dosage: 10 MG, QD, 90 MINUTES
     Dates: start: 20180418
  24. MONTELUKAST SODIUM [Suspect]
     Active Substance: MONTELUKAST SODIUM
     Dosage: 10 MG, QD, 90 DAYS
     Route: 048
     Dates: start: 20180730
  25. MONTELUKAST SODIUM [Suspect]
     Active Substance: MONTELUKAST SODIUM
     Dosage: 10 MG, QD, 60 DAYS
     Dates: start: 20181103
  26. MONTELUKAST SODIUM [Suspect]
     Active Substance: MONTELUKAST SODIUM
     Dosage: 10 MG, QD, 30 DAYS
     Route: 048
     Dates: start: 20190123
  27. MONTELUKAST SODIUM [Suspect]
     Active Substance: MONTELUKAST SODIUM
     Dosage: 10 MG, QD, 90 DAYS
     Route: 048
     Dates: start: 20190423
  28. MONTELUKAST SODIUM [Suspect]
     Active Substance: MONTELUKAST SODIUM
     Dosage: 10 MG, QD, 90 DAYS
     Route: 048
     Dates: start: 20190509
  29. MONTELUKAST SODIUM [Suspect]
     Active Substance: MONTELUKAST SODIUM
     Dosage: 10 MG, QD, 30 DAYS
     Route: 048
     Dates: start: 20190806
  30. MONTELUKAST SODIUM [Suspect]
     Active Substance: MONTELUKAST SODIUM
     Dosage: 10 MG, QD, 10 DAYS
     Route: 048
     Dates: start: 20190806
  31. SPIRIVA RESPIMAT [Suspect]
     Active Substance: TIOTROPIUM BROMIDE
     Indication: Product used for unknown indication
     Dosage: 2 PUFF(S), QD
     Route: 065
  32. ALVESCO [Suspect]
     Active Substance: CICLESONIDE
     Indication: Product used for unknown indication
     Dosage: 2 PUFF(S), BID, 90 DAYS
     Route: 065
     Dates: start: 20161123
  33. ALVESCO [Suspect]
     Active Substance: CICLESONIDE
     Dosage: 2 PUFF(S), BID, 90 DAYS
     Route: 065
     Dates: start: 20170227
  34. ALVESCO [Suspect]
     Active Substance: CICLESONIDE
     Dosage: 2 PUFF(S), BID, 90 DAYS
     Route: 065
     Dates: start: 20170525
  35. FUROSEMIDE [Suspect]
     Active Substance: FUROSEMIDE
     Indication: Product used for unknown indication
     Dosage: 20 MG, QD
     Dates: start: 20150227
  36. FUROSEMIDE [Suspect]
     Active Substance: FUROSEMIDE
     Dosage: 20 MG, QD
     Dates: start: 20150814
  37. FUROSEMIDE [Suspect]
     Active Substance: FUROSEMIDE
     Dosage: 20 MG, QD
     Dates: start: 20190806
  38. ENTRESTO [Suspect]
     Active Substance: SACUBITRIL\VALSARTAN
     Indication: Product used for unknown indication
     Dosage: 1 DF, BID
     Route: 048
     Dates: start: 20160810
  39. ENTRESTO [Suspect]
     Active Substance: SACUBITRIL\VALSARTAN
     Dosage: 1 DF, BID
     Route: 048
     Dates: start: 20160911
  40. ENTRESTO [Suspect]
     Active Substance: SACUBITRIL\VALSARTAN
     Dosage: 1 DF, BID
     Route: 048
     Dates: start: 20161213
  41. ENTRESTO [Suspect]
     Active Substance: SACUBITRIL\VALSARTAN
     Dosage: 1 DF, BID
     Route: 048
     Dates: start: 20170328
  42. ENTRESTO [Suspect]
     Active Substance: SACUBITRIL\VALSARTAN
     Dosage: 1 DF, BID
     Route: 048
     Dates: start: 20180418
  43. ENTRESTO [Suspect]
     Active Substance: SACUBITRIL\VALSARTAN
     Dosage: 1 DF, BID
     Route: 048
     Dates: start: 20180730
  44. ENTRESTO [Suspect]
     Active Substance: SACUBITRIL\VALSARTAN
     Dosage: 1 DF, BID
     Route: 048
     Dates: start: 20181023
  45. ENTRESTO [Suspect]
     Active Substance: SACUBITRIL\VALSARTAN
     Dosage: 1 DF, BID
     Route: 048
     Dates: start: 20190208
  46. ENTRESTO [Suspect]
     Active Substance: SACUBITRIL\VALSARTAN
     Dosage: 1 DF, BID
     Route: 048
     Dates: start: 20190512
  47. INSPRA [Suspect]
     Active Substance: EPLERENONE
     Indication: Product used for unknown indication
     Dosage: 50 MG, QD
     Dates: start: 20160409
  48. INSPRA [Suspect]
     Active Substance: EPLERENONE
     Dosage: 50 MG, QD
     Dates: start: 20160606
  49. INSPRA [Suspect]
     Active Substance: EPLERENONE
     Dosage: 50 MG, QD
     Dates: start: 20160810
  50. INSPRA [Suspect]
     Active Substance: EPLERENONE
     Dosage: 50 MG, QD
     Dates: start: 20170127
  51. INSPRA [Suspect]
     Active Substance: EPLERENONE
     Dosage: 50 MG, QD
     Dates: start: 20180925
  52. INSPRA [Suspect]
     Active Substance: EPLERENONE
     Dosage: 50 MG, QD
     Route: 048
     Dates: start: 20181223
  53. INSPRA [Suspect]
     Active Substance: EPLERENONE
     Dosage: 50 MG, QD
     Route: 048
     Dates: start: 20181223
  54. INSPRA [Suspect]
     Active Substance: EPLERENONE
     Dosage: 50 MG, QD
     Route: 048
     Dates: start: 20190326
  55. PREDNISONE [Suspect]
     Active Substance: PREDNISONE
     Indication: Product used for unknown indication
     Dosage: 50 MG, QD, 7 DAYS
     Dates: start: 20150211
  56. PREDNISONE [Suspect]
     Active Substance: PREDNISONE
     Dosage: 40 MG, QD, 7 DAYS
     Dates: start: 20150609
  57. PREDNISONE [Suspect]
     Active Substance: PREDNISONE
     Dosage: 50 MG, QD, 03 DAYS
     Dates: start: 20150924
  58. PREDNISONE [Suspect]
     Active Substance: PREDNISONE
     Dosage: 5 MG, 26 DAYS
     Route: 065
     Dates: start: 20151009
  59. PREDNISONE [Suspect]
     Active Substance: PREDNISONE
     Dosage: 5 MG, 5 DAYS
     Dates: start: 20160113
  60. PREDNISONE [Suspect]
     Active Substance: PREDNISONE
     Dosage: 5 MG, 35 DAYS
     Dates: start: 20160131
  61. PREDNISONE [Suspect]
     Active Substance: PREDNISONE
     Dosage: 25 MG, QD, 3 DAYS
     Dates: start: 20160831
  62. PREDNISONE [Suspect]
     Active Substance: PREDNISONE
     Dosage: 25 MG, QD, 3 DAYS
     Dates: start: 20160911
  63. PREDNISONE [Suspect]
     Active Substance: PREDNISONE
     Dosage: 25 MG, QD, 3 DAYS
     Dates: start: 20161021
  64. PREDNISONE [Suspect]
     Active Substance: PREDNISONE
     Dosage: 25 MG, QD, 3 DAYS
     Dates: start: 20170127
  65. PREDNISONE [Suspect]
     Active Substance: PREDNISONE
     Dosage: 50 MG, QD, 5 DAYS
     Route: 048
     Dates: start: 20170227
  66. PREDNISONE [Suspect]
     Active Substance: PREDNISONE
     Dosage: 50 MG, QD, 5 DAYS
     Route: 048
     Dates: start: 20171009
  67. PREDNISONE [Suspect]
     Active Substance: PREDNISONE
     Dosage: 50 MG, QD, 5 DAYS
     Dates: start: 20180321
  68. PREDNISONE [Suspect]
     Active Substance: PREDNISONE
     Dosage: 50 MG, QD, 4 DAYS
     Dates: start: 20190509
  69. PREDNISONE [Suspect]
     Active Substance: PREDNISONE
     Dosage: 50 MG, QD, 5 DAYS
     Route: 048
     Dates: start: 20190723
  70. PREDNISONE [Suspect]
     Active Substance: PREDNISONE
     Dosage: 5 MG, 31 DAYS
  71. PREGABALIN [Suspect]
     Active Substance: PREGABALIN
     Indication: Product used for unknown indication
     Dosage: 50 MG, BID
     Route: 048
     Dates: start: 20180410
  72. ACETAMINOPHEN\TRAMADOL HYDROCHLORIDE [Suspect]
     Active Substance: ACETAMINOPHEN\TRAMADOL HYDROCHLORIDE
     Indication: Product used for unknown indication
     Dosage: UNK, 1-2 TABLEST EVERY 4 HOURS AS NEEDED, 5 DAYS
     Route: 048
     Dates: start: 20180409
  73. KETOROLAC TROMETHAMINE [Suspect]
     Active Substance: KETOROLAC TROMETHAMINE
     Indication: Product used for unknown indication
     Dosage: 10 MG, TID
     Route: 048
     Dates: start: 20180404
  74. CYCLOBENZAPRINE [Suspect]
     Active Substance: CYCLOBENZAPRINE
     Indication: Product used for unknown indication
     Dosage: 10 MG, TID, 5 DAYS
     Route: 048
     Dates: start: 20180404
  75. VARENICLINE TARTRATE [Suspect]
     Active Substance: VARENICLINE TARTRATE
     Indication: Product used for unknown indication
     Dosage: UNK
     Dates: start: 20160216
  76. GLYCOPYRROLATE [Suspect]
     Active Substance: GLYCOPYRROLATE
     Indication: Asthma
     Dosage: 1 DF, QD, 30 DAYS
     Route: 055
     Dates: start: 20150611
  77. GLYCOPYRROLATE [Suspect]
     Active Substance: GLYCOPYRROLATE
     Dosage: 50 UG, QD, 30 DAYS
     Route: 055
     Dates: start: 20151009
  78. GLYCOPYRROLATE [Suspect]
     Active Substance: GLYCOPYRROLATE
     Dosage: 50 UG, QD, 30 DAYS
     Route: 055
     Dates: start: 20160120
  79. AZITHROMYCIN [Suspect]
     Active Substance: AZITHROMYCIN
     Indication: Product used for unknown indication
     Dosage: 250 MG
     Route: 065
  80. AMLODIPINE BESYLATE [Suspect]
     Active Substance: AMLODIPINE BESYLATE
     Indication: Product used for unknown indication
     Dosage: 2.5 MG, QD
     Route: 065
     Dates: start: 20150609
  81. AMLODIPINE BESYLATE [Suspect]
     Active Substance: AMLODIPINE BESYLATE
     Dosage: 2.5 MG, MO
     Route: 065
  82. SPIRONOLACTONE [Suspect]
     Active Substance: SPIRONOLACTONE
     Indication: Product used for unknown indication
     Dosage: 12.5 MG, QD
     Dates: start: 20150227
  83. CARVEDILOL [Suspect]
     Active Substance: CARVEDILOL
     Indication: Product used for unknown indication
     Dosage: 6.25 MG, BID, 90 DAYS
     Dates: start: 20150227
  84. PERINDOPRIL [Suspect]
     Active Substance: PERINDOPRIL
     Indication: Product used for unknown indication
     Dosage: 8 MG, QD
     Dates: start: 20150227
  85. INDAPAMIDE\PERINDOPRIL ERBUMINE [Suspect]
     Active Substance: INDAPAMIDE\PERINDOPRIL ERBUMINE
     Indication: Product used for unknown indication
     Dosage: 1 DF (TABLET), QD, 90 DAYS
     Dates: start: 20130927
  86. INDAPAMIDE\PERINDOPRIL ERBUMINE [Suspect]
     Active Substance: INDAPAMIDE\PERINDOPRIL ERBUMINE
     Dosage: 1 DF, QD, 90 DAYS
     Dates: start: 20140127
  87. INDAPAMIDE\PERINDOPRIL ERBUMINE [Suspect]
     Active Substance: INDAPAMIDE\PERINDOPRIL ERBUMINE
     Dosage: 1 DF, QD, 90 DAYS
     Dates: start: 20140422
  88. INDAPAMIDE\PERINDOPRIL ERBUMINE [Suspect]
     Active Substance: INDAPAMIDE\PERINDOPRIL ERBUMINE
     Dosage: 1 DF, QD, 90 DAYS
     Dates: start: 20140630
  89. INDAPAMIDE\PERINDOPRIL ERBUMINE [Suspect]
     Active Substance: INDAPAMIDE\PERINDOPRIL ERBUMINE
     Dosage: 1 DF, QD, 90 DAYS
     Dates: start: 20141004
  90. INDAPAMIDE\PERINDOPRIL ERBUMINE [Suspect]
     Active Substance: INDAPAMIDE\PERINDOPRIL ERBUMINE
     Dosage: 1 DF, QD, 90 DAYS
     Dates: start: 20150209
  91. ATROVENT HFA [Suspect]
     Active Substance: IPRATROPIUM BROMIDE
     Indication: Product used for unknown indication
     Dosage: 20 UG, QID, 25 DAYS
     Route: 055
     Dates: start: 20150609
  92. BISOPROLOL FUMARATE [Suspect]
     Active Substance: BISOPROLOL FUMARATE
     Indication: Product used for unknown indication
     Dosage: 2.5 MG, QD, 30 DAYS
     Route: 065
     Dates: start: 20150713
  93. BISOPROLOL FUMARATE [Suspect]
     Active Substance: BISOPROLOL FUMARATE
     Dosage: 0.25 DF, QD, 07 DAYS
     Route: 065
     Dates: start: 20160125
  94. MONTELUKAST [Suspect]
     Active Substance: MONTELUKAST SODIUM
     Indication: Product used for unknown indication
     Dosage: 10 MG, QD
     Dates: start: 20160131
  95. ZENHALE [Suspect]
     Active Substance: FORMOTEROL FUMARATE\MOMETASONE FUROATE
     Indication: Product used for unknown indication
     Dosage: UNK, 90 DAYS
     Dates: start: 20160810
  96. ZENHALE [Suspect]
     Active Substance: FORMOTEROL FUMARATE\MOMETASONE FUROATE
     Dosage: 2 PUFF(S), BID, 90 DAYS
     Route: 055
     Dates: start: 20161113
  97. ACETAMINOPHEN\BUTALBITAL [Suspect]
     Active Substance: ACETAMINOPHEN\BUTALBITAL
     Indication: Product used for unknown indication
     Dosage: UNK
     Route: 048
  98. CYCLOBENZAPRINE HYDROCHLORIDE\DICLOFENAC POTASSIUM [Suspect]
     Active Substance: CYCLOBENZAPRINE HYDROCHLORIDE\DICLOFENAC POTASSIUM
     Indication: Product used for unknown indication
     Dosage: 10 MG
  99. FORMOTEROL [Suspect]
     Active Substance: FORMOTEROL
     Indication: Product used for unknown indication
     Dosage: 2 DF
  100. FUROSEMIDE\POTASSIUM CHLORIDE [Suspect]
     Active Substance: FUROSEMIDE\POTASSIUM CHLORIDE
     Indication: Product used for unknown indication
     Dosage: UNK
  101. KETOROLAC [Suspect]
     Active Substance: KETOROLAC TROMETHAMINE
     Indication: Product used for unknown indication
     Dosage: 10 MG
     Route: 048
  102. IVABRADINE HYDROCHLORIDE [Suspect]
     Active Substance: IVABRADINE HYDROCHLORIDE
     Indication: Product used for unknown indication
     Dosage: 7.5 MG, BID, 90 DAYS
     Route: 048
     Dates: start: 20190329
  103. MONTELUKAST [Suspect]
     Active Substance: MONTELUKAST SODIUM
     Indication: Product used for unknown indication
     Dosage: 10 MG
  104. INDAPAMIDE\PERINDOPRIL [Suspect]
     Active Substance: INDAPAMIDE\PERINDOPRIL
     Indication: Product used for unknown indication
     Dosage: 1 DF
  105. DOXYCYCLINE [Suspect]
     Active Substance: DOXYCYCLINE\DOXYCYCLINE HYCLATE
     Indication: Product used for unknown indication
     Dosage: 100 MG, BID
     Route: 065
     Dates: start: 20150924
  106. DOXYCYCLINE [Suspect]
     Active Substance: DOXYCYCLINE\DOXYCYCLINE HYCLATE
     Dosage: 100 MG, BID
     Route: 048
     Dates: start: 20171009
  107. DOXYCYCLINE [Suspect]
     Active Substance: DOXYCYCLINE\DOXYCYCLINE HYCLATE
     Dosage: 100 MG
     Route: 065
     Dates: start: 20180321
  108. DOXYCYCLINE [Suspect]
     Active Substance: DOXYCYCLINE\DOXYCYCLINE HYCLATE
     Dosage: 100 MG, BID
     Route: 065
     Dates: start: 20180226
  109. DOXYCYCLINE [Suspect]
     Active Substance: DOXYCYCLINE\DOXYCYCLINE HYCLATE
     Dosage: 100 MG, BID
     Route: 048
     Dates: start: 20190723
  110. DOXYCYCLINE [Suspect]
     Active Substance: DOXYCYCLINE\DOXYCYCLINE HYCLATE
     Dosage: 100 MG, BID
     Route: 065
     Dates: start: 20190806
  111. AMLODIPINE MESYLATE [Suspect]
     Active Substance: AMLODIPINE MESYLATE
     Indication: Product used for unknown indication
     Dosage: 2.5 MG, MO, 30 DAYS
  112. DOXYCYCLINE HYCLATE [Suspect]
     Active Substance: DOXYCYCLINE HYCLATE
     Indication: Product used for unknown indication
     Dosage: 100 MG, 5 DAYS
  113. DOXYCYCLINE HYCLATE [Suspect]
     Active Substance: DOXYCYCLINE HYCLATE
     Dosage: 100 MG, 10 DAYS
     Route: 048
  114. DOXYCYCLINE HYCLATE [Suspect]
     Active Substance: DOXYCYCLINE HYCLATE
     Dosage: 100 MG, 7 DAYS
  115. DOXYCYCLINE HYCLATE [Suspect]
     Active Substance: DOXYCYCLINE HYCLATE
     Dosage: 100 MG, 10 DAYS
     Route: 048
  116. DOXYCYCLINE HYCLATE [Suspect]
     Active Substance: DOXYCYCLINE HYCLATE
     Dosage: 100 MG, 10 DAYS
  117. DOXYCYCLINE HYCLATE [Suspect]
     Active Substance: DOXYCYCLINE HYCLATE
     Dosage: 100 MG, 10 DAYS
     Route: 048
  118. KETOROLAC TROMETHAMINE [Suspect]
     Active Substance: KETOROLAC TROMETHAMINE
     Indication: Product used for unknown indication
     Dosage: 10 MG, 5 DAYS
     Route: 048
  119. FUROSEMIDE [Suspect]
     Active Substance: FUROSEMIDE
     Indication: Product used for unknown indication
     Dosage: 20 MG, 100 DAYS
     Route: 065
  120. FUROSEMIDE [Suspect]
     Active Substance: FUROSEMIDE
     Dosage: 20 MG, 90 DAYS
     Route: 065
  121. PERINDOPRIL [Suspect]
     Active Substance: PERINDOPRIL
     Indication: Product used for unknown indication
     Dosage: 8 MG, 90 DAYS
  122. PREGABALIN [Suspect]
     Active Substance: PREGABALIN
     Indication: Product used for unknown indication
     Dosage: 50 MG, 30 DAYS
     Route: 048
  123. SPIRONOLACTONE [Suspect]
     Active Substance: SPIRONOLACTONE
     Indication: Product used for unknown indication
     Dosage: 12.5 MG, 90 DAYS
  124. TIOTROPIUM BROMIDE MONOHYDRATE [Suspect]
     Active Substance: TIOTROPIUM BROMIDE MONOHYDRATE
     Indication: Product used for unknown indication
     Dosage: 2 DF
  125. INFLUENZA VIRUS VACCINE [Concomitant]
     Active Substance: INFLUENZA VIRUS VACCINE
     Indication: Prophylaxis
     Dosage: UNK

REACTIONS (14)
  - Dyspnoea [Recovering/Resolving]
  - Asthma [Recovering/Resolving]
  - Cardiomyopathy [Recovering/Resolving]
  - Ischaemic cardiomyopathy [Recovering/Resolving]
  - Obstructive airways disorder [Recovering/Resolving]
  - Bronchial hyperreactivity [Recovering/Resolving]
  - Pulmonary function test abnormal [Recovering/Resolving]
  - Cardiac disorder [Recovering/Resolving]
  - Bronchitis [Recovering/Resolving]
  - Eosinophilia [Recovering/Resolving]
  - Breath sounds abnormal [Recovering/Resolving]
  - Asthma-chronic obstructive pulmonary disease overlap syndrome [Recovering/Resolving]
  - Drug intolerance [Recovering/Resolving]
  - Drug ineffective [Recovering/Resolving]

NARRATIVE: CASE EVENT DATE: 20180201
